FAERS Safety Report 6188515-X (Version None)
Quarter: 2009Q2

REPORT INFORMATION
  Report Type: 
  Country: None (occurrence: None)
  Receive Date: 20090513
  Receipt Date: 20080214
  Transmission Date: 20091009
  Serious: Yes (Hospitalization, Other)
  Sender: FDA-Public Use
  Company Number: FR-ALEXION-A200700108

PATIENT

DRUGS (28)
  1. SOLIRIS [Suspect]
     Indication: PAROXYSMAL NOCTURNAL HAEMOGLOBINURIA
     Dosage: 600 MG, SINGLE
     Route: 042
     Dates: start: 20070314, end: 20070314
  2. SOLIRIS [Suspect]
     Dosage: 600 MG, SINGLE
     Route: 042
     Dates: start: 20070323, end: 20070323
  3. SOLIRIS [Suspect]
     Dosage: 600 MG, SINGLE
     Route: 042
     Dates: start: 20070329, end: 20070329
  4. SOLIRIS [Suspect]
     Dosage: 600 MG, SINGLE
     Route: 042
     Dates: start: 20070405, end: 20070405
  5. SOLIRIS [Suspect]
     Dosage: 900 MG, SINGLE
     Route: 042
     Dates: start: 20070412, end: 20070412
  6. SOLIRIS [Suspect]
     Dosage: 900 MG, SINGLE
     Route: 042
     Dates: start: 20070426, end: 20070426
  7. SOLIRIS [Suspect]
     Dosage: 900 MG, SINGLE
     Route: 042
     Dates: start: 20070510, end: 20070510
  8. SOLIRIS [Suspect]
     Dosage: 900 MG, SINGLE
     Route: 042
     Dates: start: 20070525, end: 20070525
  9. SOLIRIS [Suspect]
     Dosage: 900 MG, SINGLE
     Route: 042
     Dates: start: 20070608, end: 20070608
  10. SOLIRIS [Suspect]
     Dosage: 900 MG, SINGLE
     Route: 042
     Dates: start: 20070622, end: 20070622
  11. SOLIRIS [Suspect]
     Dosage: 900 MG, SINGLE
     Route: 042
     Dates: start: 20070706, end: 20070706
  12. SOLIRIS [Suspect]
     Dosage: 900 MG, SINGLE
     Route: 042
     Dates: start: 20070720, end: 20070720
  13. SOLIRIS [Suspect]
     Dosage: 900 MG, SINGLE
     Route: 042
     Dates: start: 20070803, end: 20070803
  14. SOLIRIS [Suspect]
     Dosage: 900 MG, SINGLE
     Route: 042
     Dates: start: 20070817, end: 20070817
  15. SOLIRIS [Suspect]
     Dosage: 900 MG, SINGLE
     Route: 042
     Dates: start: 20070831, end: 20070831
  16. SOLIRIS [Suspect]
     Dosage: 900 MG, SINGLE
     Route: 042
     Dates: start: 20070914, end: 20070914
  17. SOLIRIS [Suspect]
     Dosage: 900 MG, SINGLE
     Route: 042
     Dates: start: 20070928, end: 20070928
  18. SOLIRIS [Suspect]
     Dosage: 900 MG, SINGLE
     Route: 042
     Dates: start: 20071012, end: 20071012
  19. SOLIRIS [Suspect]
     Dosage: 900 MG, SINGLE
     Route: 042
     Dates: start: 20071026, end: 20071026
  20. SOLIRIS [Suspect]
     Dosage: 900 MG, SINGLE
     Route: 042
     Dates: start: 20080103, end: 20080103
  21. ORACILLINE [Concomitant]
     Indication: PROPHYLAXIS
     Route: 048
     Dates: end: 20071026
  22. ORACILLINE [Concomitant]
     Route: 048
     Dates: start: 20071123
  23. CLAMOXYL /00249601/ [Concomitant]
     Indication: PROPHYLAXIS
     Route: 048
     Dates: start: 20071026, end: 20071123
  24. DAILYG (TRINORDIOL) [Concomitant]
     Indication: CONTRACEPTION
     Route: 048
     Dates: start: 20071012, end: 20071123
  25. DEPAMIDE [Concomitant]
     Indication: BIPOLAR DISORDER
  26. HALDOL [Concomitant]
     Indication: BIPOLAR DISORDER
  27. TERCIAN /00759301/ [Concomitant]
     Indication: BIPOLAR DISORDER
  28. STILNOX /00914901/ [Concomitant]
     Indication: BIPOLAR DISORDER

REACTIONS (1)
  - HAEMOLYSIS [None]
